FAERS Safety Report 8123970-7 (Version None)
Quarter: 2012Q1

REPORT INFORMATION
  Report Type: 
  Country: None (occurrence: None)
  Receive Date: 20120209
  Receipt Date: 20120203
  Transmission Date: 20120608
  Serious: Yes (Hospitalization)
  Sender: FDA-Public Use
  Company Number: US-TEVA-265564USA

PATIENT
  Age: 62 Year
  Sex: Female

DRUGS (10)
  1. COPAXONE [Suspect]
     Indication: MULTIPLE SCLEROSIS
     Route: 058
     Dates: end: 20101201
  2. KAPIDEX [Concomitant]
  3. OXYBUTYNIN [Concomitant]
  4. LOTREL [Concomitant]
  5. ANCOVERT [Concomitant]
  6. MODAFINIL [Concomitant]
  7. ESCITALOPRAM OXALATE [Concomitant]
  8. RISEDRONATE SODIUM [Concomitant]
  9. ROSUVASTATIN [Concomitant]
  10. PREGABALIN [Concomitant]

REACTIONS (1)
  - INJECTION SITE INFECTION [None]
